FAERS Safety Report 7446550-5 (Version None)
Quarter: 2011Q2

REPORT INFORMATION
  Report Type: 
  Country: None (occurrence: None)
  Receive Date: 20110429
  Receipt Date: 20110414
  Transmission Date: 20111010
  Serious: Yes (Hospitalization)
  Sender: FDA-Public Use
  Company Number: US-JNJFOC-2010018092

PATIENT
  Sex: Male
  Weight: 82.19 kg

DRUGS (3)
  1. SUDAFED PE [Suspect]
     Indication: NASOPHARYNGITIS
     Dosage: DAILY DOSE TEXT: AS DIRECTED
     Route: 048
  2. CAFFEINE [Suspect]
     Indication: PRODUCT USED FOR UNKNOWN INDICATION
  3. ANTIHISTAMINE [Suspect]
     Indication: NASOPHARYNGITIS

REACTIONS (8)
  - CARDIOMYOPATHY [None]
  - DYSPNOEA EXERTIONAL [None]
  - CHEST PAIN [None]
  - ATRIAL FIBRILLATION [None]
  - FEELING ABNORMAL [None]
  - SOMNOLENCE [None]
  - ARRHYTHMIA [None]
  - SYNCOPE [None]
